FAERS Safety Report 9577047 (Version 1)
Quarter: 2013Q4

REPORT INFORMATION
  Report Type: Spontaneous
  Country: US (occurrence: US)
  Receive Date: 20131001
  Receipt Date: 20131001
  Transmission Date: 20140711
  Serious: No
  Sender: FDA-Public Use
  Company Number: US-AMGEN-USASP2013005501

PATIENT
  Sex: Female

DRUGS (7)
  1. ENBREL [Suspect]
     Indication: RHEUMATOID ARTHRITIS
     Dosage: 50 MG, QWK
     Route: 058
  2. MELOXICAM [Concomitant]
     Dosage: 7.5 MG, UNK
  3. LEUCOVORIN CA [Concomitant]
     Dosage: 10 MG, UNK
  4. METHOTREXATE [Concomitant]
     Dosage: 2.5 MG, UNK
  5. LEFLUNOMIDE [Concomitant]
     Dosage: 10 MG, UNK
  6. LEVOTHYROXINE [Concomitant]
     Dosage: 25 MUG, UNK
  7. PRAMIPEXOLE [Concomitant]
     Dosage: 0.25 MG, UNK

REACTIONS (1)
  - Injection site pain [Unknown]
